FAERS Safety Report 6098936-1 (Version None)
Quarter: 2009Q1

REPORT INFORMATION
  Report Type: 
  Country: None (occurrence: None)
  Receive Date: 20090302
  Receipt Date: 20090225
  Transmission Date: 20090719
  Serious: Yes (Other)
  Sender: FDA-Public Use
  Company Number: US-MERCK-0902USA04297

PATIENT
  Sex: Female

DRUGS (3)
  1. ZOCOR [Suspect]
     Route: 048
  2. AMLODIPINE [Suspect]
     Route: 065
  3. NEXIUM [Suspect]
     Route: 065

REACTIONS (3)
  - ABDOMINAL DISCOMFORT [None]
  - ANEURYSM [None]
  - CEREBROVASCULAR ACCIDENT [None]
